FAERS Safety Report 9625710 (Version 1)
Quarter: 2013Q4

REPORT INFORMATION
  Report Type: Spontaneous
  Country: US (occurrence: US)
  Receive Date: 20131016
  Receipt Date: 20131016
  Transmission Date: 20140711
  Serious: Yes (Other)
  Sender: FDA-Public Use
  Company Number: US-SA-2013SA101207

PATIENT
  Age: 87 Year
  Sex: Female

DRUGS (2)
  1. LANTUS SOLOSTAR [Suspect]
     Dosage: 50-65 UNITS.
     Route: 051
  2. SOLOSTAR [Concomitant]

REACTIONS (3)
  - Spinal fracture [Unknown]
  - Visual acuity reduced [Unknown]
  - Blood glucose abnormal [Unknown]
